FAERS Safety Report 23988853 (Version 4)
Quarter: 2025Q4

REPORT INFORMATION
  Report Type: Spontaneous
  Country: US (occurrence: None)
  Receive Date: 20240619
  Receipt Date: 20251031
  Transmission Date: 20260118
  Serious: No
  Sender: UCB
  Company Number: US-UCBSA-2024009673

PATIENT
  Age: 28 Year
  Weight: 79.37 kg

DRUGS (2)
  1. BIMZELX [Suspect]
     Active Substance: BIMEKIZUMAB-BKZX
     Indication: Psoriasis
     Dosage: 320 MILLIGRAM, EV 4 WEEKS, FOR 16 WEEKS THEN 2 SYRINGES EVERY 8 WEEKS THEREAFTER/BIMZELX 160 MG X2 SQ EVERY FOUR WEEKS AS DIRECTED
  2. BIMZELX [Suspect]
     Active Substance: BIMEKIZUMAB-BKZX
     Dosage: 320 MILLIGRAM, EV 8 WEEKS

REACTIONS (2)
  - Headache [Recovering/Resolving]
  - Acne [Recovered/Resolved]
